FAERS Safety Report 8325742-7 (Version None)
Quarter: 2012Q2

REPORT INFORMATION
  Report Type: 
  Country: None (occurrence: None)
  Receive Date: 20120501
  Receipt Date: 20120424
  Transmission Date: 20120825
  Serious: No
  Sender: FDA-Public Use
  Company Number: US-BIOGENIDEC-2010BI013934

PATIENT
  Sex: Female

DRUGS (3)
  1. TYSABRI [Suspect]
     Route: 042
     Dates: start: 20091009
  2. TYSABRI [Suspect]
     Indication: MULTIPLE SCLEROSIS
     Route: 042
     Dates: start: 20070914, end: 20090724
  3. SOLU-MEDROL [Concomitant]
     Indication: MULTIPLE SCLEROSIS
     Dates: start: 20080101

REACTIONS (12)
  - MOBILITY DECREASED [None]
  - WEIGHT INCREASED [None]
  - BALANCE DISORDER [None]
  - ASTHENIA [None]
  - MUSCULOSKELETAL STIFFNESS [None]
  - STRESS [None]
  - MUSCLE SPASTICITY [None]
  - MIDDLE INSOMNIA [None]
  - TRIGEMINAL NEURALGIA [None]
  - SUICIDAL IDEATION [None]
  - POOR VENOUS ACCESS [None]
  - MUSCULOSKELETAL DISORDER [None]
